FAERS Safety Report 5789597-7 (Version None)
Quarter: 2008Q2

REPORT INFORMATION
  Report Type: 
  Country: None (occurrence: None)
  Receive Date: 20080626
  Receipt Date: 20080617
  Transmission Date: 20081010
  Serious: Yes (Other)
  Sender: FDA-Public Use
  Company Number: GB-ASTRAZENECA-2008GB01127

PATIENT
  Sex: Female

DRUGS (2)
  1. XYLOCAINE [Suspect]
     Route: 008
     Dates: start: 19900101
  2. BETNOVAT [Concomitant]

REACTIONS (5)
  - ABDOMINAL PAIN UPPER [None]
  - CHEST PAIN [None]
  - ERYTHEMA [None]
  - HAEMORRHAGE [None]
  - HYPERSENSITIVITY [None]
